FAERS Safety Report 10017199 (Version 4)
Quarter: 2017Q2

REPORT INFORMATION
  Report Type: Report from Study
  Country: CZ (occurrence: CZ)
  Receive Date: 20140318
  Receipt Date: 20170405
  Transmission Date: 20170829
  Serious: Yes (Hospitalization)
  Sender: FDA-Public Use
  Company Number: CZ-ROCHE-1260112

PATIENT
  Age: 60 Year
  Sex: Male
  Weight: 71.5 kg

DRUGS (19)
  1. PARACETAMOL [Concomitant]
     Active Substance: ACETAMINOPHEN
     Route: 065
     Dates: start: 20130401, end: 20130503
  2. ALLOPURINOLUM [Concomitant]
     Indication: HYPERURICAEMIA
     Route: 065
     Dates: start: 20120808
  3. HYDROCORTISONUM [Concomitant]
     Active Substance: HYDROCORTISONE
     Indication: PROPHYLAXIS
     Route: 065
     Dates: start: 20121212
  4. CIPROFLOXACINUM [Concomitant]
     Indication: C-REACTIVE PROTEIN INCREASED
     Route: 065
     Dates: start: 20130503, end: 20130508
  5. AMOXICILLINUM [Concomitant]
     Indication: PYREXIA
  6. CYCLOPHOSPHAMIDE. [Suspect]
     Active Substance: CYCLOPHOSPHAMIDE
     Indication: B-CELL LYMPHOMA
     Dosage: CHOP THERAPY (6 CYCLES OF 21 DAYS)?ON 21/NOV/2012, MOST RECENT DOSE (1500 MG) OF CYCLOPHOSPHAMIDE PR
     Route: 042
     Dates: start: 20120808
  7. RED BLOOD CELLS [Concomitant]
     Active Substance: HUMAN RED BLOOD CELL
     Indication: ANAEMIA
     Dosage: TWO
     Route: 065
     Dates: start: 20130504, end: 20130504
  8. TAMSULOSINI HYDROCHLORIDUM [Concomitant]
     Indication: BENIGN PROSTATIC HYPERPLASIA
     Route: 065
     Dates: start: 2011
  9. CIPROFLOXACINUM [Concomitant]
     Indication: PYREXIA
  10. OBINUTUZUMAB [Suspect]
     Active Substance: OBINUTUZUMAB
     Indication: B-CELL LYMPHOMA
     Dosage: DOSE AS PER PROTOCOL: 1000 MG IV ON DAYS 1, 8 AND 15 OF CYCLE 1 AND ON DAY 1 OF CYCLES 2-8 (21-DAY C
     Route: 042
     Dates: start: 20120808
  11. PREDNISONE. [Suspect]
     Active Substance: PREDNISONE
     Indication: B-CELL LYMPHOMA
     Dosage: CHOP THERAPY (6 CYCLES OF 21 DAYS)?25/NOV/2012, MOST RECENT DOSE (100 MG) OF PREDNISONE PRIOR TO EVE
     Route: 065
     Dates: start: 20120808
  12. AMOXICILLINUM [Concomitant]
     Indication: C-REACTIVE PROTEIN INCREASED
     Route: 065
     Dates: start: 20130503, end: 20130510
  13. PARACETAMOLUM [Concomitant]
     Active Substance: ACETAMINOPHEN
     Indication: PYREXIA
     Route: 065
     Dates: start: 20130401, end: 20130503
  14. DOXORUBICIN [Suspect]
     Active Substance: DOXORUBICIN
     Indication: B-CELL LYMPHOMA
     Dosage: CHOP THERAPY (6 CYCLES OF 21 DAYS)?21/NOV/2012, MOST RECENT DOSE 100 MG OF DOXORUBICIN PRIOR TO EVEN
     Route: 042
     Dates: start: 20120808
  15. METOPROLOL TARTRATE. [Concomitant]
     Active Substance: METOPROLOL TARTRATE
     Indication: TACHYCARDIA
     Route: 065
     Dates: start: 2009
  16. BISULEPIN HYDROCHLORIDE [Concomitant]
     Active Substance: BISULEPIN HYDROCHLORIDE
     Indication: PROPHYLAXIS
     Route: 065
     Dates: start: 20120808, end: 20141212
  17. VINCRISTINE [Suspect]
     Active Substance: VINCRISTINE
     Indication: B-CELL LYMPHOMA
     Dosage: CHOP THERAPY (6 CYCLES OF 21 DAYS)?21/NOV/2012, MOST RECENT DOSE (2 MG) OF VINCRISTINE PRIOR TO EVEN
     Route: 042
     Dates: start: 20120808
  18. PARACETAMOL [Concomitant]
     Active Substance: ACETAMINOPHEN
     Indication: PROPHYLAXIS
     Route: 065
     Dates: start: 20120808, end: 20141212
  19. HEPARIN NATRIUM [Concomitant]
     Indication: EMBOLISM
     Route: 065
     Dates: start: 20130503, end: 20130507

REACTIONS (1)
  - Cardiac failure [Recovered/Resolved]

NARRATIVE: CASE EVENT DATE: 20130503
